FAERS Safety Report 8365863-6 (Version None)
Quarter: 2012Q2

REPORT INFORMATION
  Report Type: 
  Country: None (occurrence: None)
  Receive Date: 20120515
  Receipt Date: 20120501
  Transmission Date: 20120825
  Serious: Yes (Hospitalization)
  Sender: FDA-Public Use
  Company Number: NGX_01079_2012

PATIENT
  Sex: Male

DRUGS (12)
  1. QDCAL [Concomitant]
  2. QUTENZA [Suspect]
     Indication: NEURALGIA
     Dosage: (DF [PATCH, STAT] TOPICAL)
     Route: 061
  3. ZOPICLONE [Concomitant]
  4. MULTI-VITAMINS [Concomitant]
  5. FOLIC ACID [Concomitant]
  6. TRAMADOL HYDROCHLORIDE [Concomitant]
  7. GABAPENTIN [Concomitant]
  8. OMEPRAZOLE [Concomitant]
  9. TRUVADA [Concomitant]
  10. OXYNORM [Concomitant]
  11. CLONAZEPAM [Concomitant]
  12. NEVIRAPINE [Concomitant]

REACTIONS (3)
  - RED BLOOD CELLS URINE POSITIVE [None]
  - WHITE BLOOD CELLS URINE POSITIVE [None]
  - UPPER RESPIRATORY TRACT INFECTION [None]
